FAERS Safety Report 19997218 (Version 1)
Quarter: 2021Q4

REPORT INFORMATION
  Report Type: Spontaneous
  Country: CA (occurrence: CA)
  Receive Date: 20211026
  Receipt Date: 20211026
  Transmission Date: 20220303
  Serious: Yes (Other)
  Sender: FDA-Public Use
  Company Number: CA-PFIZER INC-2019554638

PATIENT
  Age: 46 Year
  Sex: Female

DRUGS (4)
  1. XELJANZ [Suspect]
     Active Substance: TOFACITINIB CITRATE
     Indication: Colitis ulcerative
     Dosage: 10 MG, 2X/DAY
     Route: 048
     Dates: start: 20191129, end: 202101
  2. XELJANZ [Suspect]
     Active Substance: TOFACITINIB CITRATE
     Dosage: 10 MG, 2X/DAY
     Route: 048
     Dates: start: 2021, end: 202107
  3. BUDESONIDE [Concomitant]
     Active Substance: BUDESONIDE
     Dosage: 9 MG
  4. PREDNISONE [Concomitant]
     Active Substance: PREDNISONE
     Dosage: 1 DF

REACTIONS (7)
  - Dizziness [Unknown]
  - Headache [Unknown]
  - Anxiety [Unknown]
  - Fatigue [Unknown]
  - Loss of consciousness [Unknown]
  - Condition aggravated [Unknown]
  - Illness [Recovering/Resolving]

NARRATIVE: CASE EVENT DATE: 20210101
